FAERS Safety Report 5739750-3 (Version None)
Quarter: 2008Q2

REPORT INFORMATION
  Report Type: 
  Country: None (occurrence: None)
  Receive Date: 20080512
  Receipt Date: 20080512
  Transmission Date: 20081010
  Serious: Yes (Hospitalization)
  Sender: FDA-Public Use
  Company Number: None

PATIENT
  Age: 60 Year
  Sex: Male

DRUGS (2)
  1. WARFARIN SODIUM [Suspect]
     Indication: CORONARY ARTERY DISEASE
     Dosage: 5MG/7.5MG ALTERNATING DAILY PO
     Route: 048
  2. INDOMETHACIN [Suspect]
     Indication: GOUT

REACTIONS (6)
  - ANOREXIA [None]
  - ARTERIOVENOUS MALFORMATION [None]
  - DUODENITIS [None]
  - GASTRITIS [None]
  - MELAENA [None]
  - NAUSEA [None]
